FAERS Safety Report 4660551-1 (Version None)
Quarter: 2005Q2

REPORT INFORMATION
  Report Type: 
  Country: None (occurrence: None)
  Receive Date: 20050427
  Receipt Date: 20050406
  Transmission Date: 20051028
  Serious: No
  Sender: FDA-Public Use
  Company Number: 212565

PATIENT
  Sex: Female

DRUGS (2)
  1. XOLAIR [Suspect]
     Indication: DRUG USE FOR UNKNOWN INDICATION
     Dosage: 2.4 ML, 1/MONTH, SUBCUTANEOUS
     Route: 058
  2. XOLAIR [Suspect]

REACTIONS (1)
  - CHEST DISCOMFORT [None]
